FAERS Safety Report 6004993-0 (Version None)
Quarter: 2008Q4

REPORT INFORMATION
  Report Type: 
  Country: None (occurrence: None)
  Receive Date: 20081216
  Receipt Date: 20081201
  Transmission Date: 20090506
  Serious: Yes (Hospitalization)
  Sender: FDA-Public Use
  Company Number: BE-GENENTECH-273256

PATIENT
  Sex: Male

DRUGS (7)
  1. RITUXIMAB [Suspect]
     Indication: DIFFUSE LARGE B-CELL LYMPHOMA
     Dosage: 682 MG, UNK
     Route: 042
     Dates: start: 20081003, end: 20081127
  2. CYCLOPHOSPHAMIDE [Suspect]
     Indication: DIFFUSE LARGE B-CELL LYMPHOMA
     Dosage: 2182 MG, UNK
     Route: 042
     Dates: start: 20081003, end: 20081127
  3. DOXORUBICIN HCL [Suspect]
     Indication: DIFFUSE LARGE B-CELL LYMPHOMA
     Dosage: 136 MG, UNK
     Route: 042
     Dates: start: 20081003, end: 20081127
  4. BLEOMYCIN SULFATE [Suspect]
     Indication: DIFFUSE LARGE B-CELL LYMPHOMA
     Dosage: 20 MG, UNK
     Route: 042
     Dates: start: 20081003, end: 20081127
  5. VINDESINE [Suspect]
     Indication: DIFFUSE LARGE B-CELL LYMPHOMA
     Dosage: 7.3 MG, UNK
     Route: 042
     Dates: start: 20081003, end: 20081127
  6. PREDNISONE TAB [Suspect]
     Indication: DIFFUSE LARGE B-CELL LYMPHOMA
     Dosage: 448 MG, UNK
     Route: 042
     Dates: start: 20081003, end: 20081127
  7. METHOTREXATE [Suspect]
     Indication: DIFFUSE LARGE B-CELL LYMPHOMA
     Dosage: 12 MG, UNK
     Route: 042
     Dates: start: 20081003, end: 20081127

REACTIONS (1)
  - MUCOSAL INFLAMMATION [None]
